FAERS Safety Report 4617948-5 (Version None)
Quarter: 2005Q1

REPORT INFORMATION
  Report Type: 
  Country: None (occurrence: None)
  Receive Date: 20050322
  Receipt Date: 20050308
  Transmission Date: 20050727
  Serious: Yes (Other)
  Sender: FDA-Public Use
  Company Number: 2005042818

PATIENT
  Age: 15 Year
  Sex: Female
  Weight: 57.6068 kg

DRUGS (5)
  1. BEXTRA [Suspect]
     Indication: LIMB INJURY
     Dosage: 10 MG (10 MG, 1 IN 1 D), ORAL
     Route: 048
     Dates: start: 20041001
  2. ASCORBIC ACID [Concomitant]
  3. ATENOLOL [Concomitant]
  4. MIDODRINE (MIDRODRINE) [Concomitant]
  5. FLUDROCORTISONE ACETATE (FLUDROCORTICOSONE ACETATE) [Concomitant]

REACTIONS (7)
  - CARDIAC DISORDER [None]
  - CONDITION AGGRAVATED [None]
  - FALL [None]
  - HEART RATE IRREGULAR [None]
  - LIMB INJURY [None]
  - TACHYCARDIA [None]
  - VENTRICULAR EXTRASYSTOLES [None]
